FAERS Safety Report 12913600 (Version 5)
Quarter: 2017Q1

REPORT INFORMATION
  Report Type: Report from Study
  Country: None (occurrence: CA)
  Receive Date: 20161104
  Receipt Date: 20170124
  Transmission Date: 20170428
  Serious: Yes (Hospitalization, Other)
  Sender: FDA-Public Use
  Company Number: CA-ABBVIE-16P-028-1771915-00

PATIENT
  Age: 72 Year
  Sex: Male
  Weight: 90 kg

DRUGS (5)
  1. TECHNIVIE [Suspect]
     Active Substance: OMBITASVIR HEMINONAHYDRATE\PARITAPREVIR DIHYDRATE\RITONAVIR
     Indication: HEPATITIS C
     Dosage: TWO OMBITASVIR/PARITAPREVIR/RITONAVIR 12.5/75/50 MG TABLETS ONCE DAILY
     Route: 048
     Dates: start: 20161026
  2. MODERIBA [Suspect]
     Active Substance: RIBAVIRIN
     Dosage: 200MG 1 DAY AND 400MG ANOTHER DAY IN ALTERNATE
     Route: 048
     Dates: start: 2016
  3. TACROLIMUS. [Suspect]
     Active Substance: TACROLIMUS
     Indication: PRODUCT USED FOR UNKNOWN INDICATION
     Dosage: 10.2
     Route: 065
     Dates: start: 20161026
  4. MODERIBA [Suspect]
     Active Substance: RIBAVIRIN
     Indication: HEPATITIS C
     Dosage: 600MG IN THE AM AND 400MG IN THE PM
     Route: 048
     Dates: start: 20161026, end: 2016
  5. TACROLIMUS. [Suspect]
     Active Substance: TACROLIMUS
     Dosage: 10.6
     Route: 065

REACTIONS (7)
  - Vomiting [Unknown]
  - Blood creatinine increased [Unknown]
  - Blood bilirubin increased [Recovering/Resolving]
  - Post procedural infection [Unknown]
  - Overdose [Recovering/Resolving]
  - Malaise [Unknown]
  - Diarrhoea [Recovered/Resolved]

NARRATIVE: CASE EVENT DATE: 20161031
